FAERS Safety Report 6742681-3 (Version None)
Quarter: 2010Q2

REPORT INFORMATION
  Report Type: 
  Country: None (occurrence: None)
  Receive Date: 20100526
  Receipt Date: 20090615
  Transmission Date: 20101027
  Serious: No
  Sender: FDA-Public Use
  Company Number: US-ABBOTT-09P-163-0578415-00

PATIENT
  Sex: Male
  Weight: 108.96 kg

DRUGS (26)
  1. ZEMPLAR [Suspect]
     Indication: RENAL FAILURE
     Route: 048
     Dates: start: 20090301
  2. AMLODIPINE [Concomitant]
     Indication: BLOOD PRESSURE
     Route: 048
  3. AMLODIPINE [Concomitant]
     Indication: HYPERTENSION
  4. LASIX [Concomitant]
     Indication: CARDIAC FAILURE CONGESTIVE
     Route: 048
  5. NU-IRON [Concomitant]
     Indication: MINERAL SUPPLEMENTATION
     Route: 048
  6. LOVAZA [Concomitant]
     Indication: ARTHROPATHY
     Route: 048
  7. LOVAZA [Concomitant]
     Indication: CARDIAC DISORDER
  8. LOVAZA [Concomitant]
     Indication: VITAMIN SUPPLEMENTATION
  9. MULTI-VITAMIN [Concomitant]
     Indication: VITAMIN SUPPLEMENTATION
     Route: 048
  10. ZETIA [Concomitant]
     Indication: LOW DENSITY LIPOPROTEIN INCREASED
     Route: 048
  11. ZETIA [Concomitant]
     Indication: HIGH DENSITY LIPOPROTEIN DECREASED
  12. NEURONTIN [Concomitant]
     Indication: NEUROPATHY PERIPHERAL
     Route: 048
  13. GLIDAZIDE [Concomitant]
     Indication: DIABETES MELLITUS
     Route: 048
  14. PLAVIX [Concomitant]
     Indication: STENT PLACEMENT
     Route: 048
  15. COREG [Concomitant]
     Indication: CARDIAC DISORDER
     Route: 048
  16. COREG [Concomitant]
     Indication: HYPERTENSION
  17. TRICOR [Concomitant]
     Indication: BLOOD TRIGLYCERIDES INCREASED
     Route: 048
  18. ASPIRIN [Concomitant]
     Indication: CARDIAC DISORDER
     Route: 048
  19. ALLOPURINOL [Concomitant]
     Indication: GOUT
     Route: 048
  20. OMEPRAZOLE [Concomitant]
     Indication: GASTROOESOPHAGEAL REFLUX DISEASE
     Route: 048
  21. TYLENOL (CAPLET) [Concomitant]
     Indication: ARTHRALGIA
     Dosage: 6X DAILY AS NEEDED
     Route: 048
  22. COZAAR [Concomitant]
     Indication: BLOOD PRESSURE
     Route: 048
  23. COZAAR [Concomitant]
     Indication: NEPHROPATHY
  24. VITAMIN D [Concomitant]
     Indication: ARTHRITIS
  25. VITAMIN D [Concomitant]
     Indication: CARDIAC DISORDER
  26. TYLENOL PM [Concomitant]
     Indication: SLEEP DISORDER

REACTIONS (5)
  - ARTHRALGIA [None]
  - FATIGUE [None]
  - MUSCULAR WEAKNESS [None]
  - ORAL DISCOMFORT [None]
  - ORAL PAIN [None]
